FAERS Safety Report 4712714-4 (Version None)
Quarter: 2005Q3

REPORT INFORMATION
  Report Type: 
  Country: None (occurrence: None)
  Receive Date: 20050706
  Receipt Date: 20040802
  Transmission Date: 20060218
  Serious: No
  Sender: FDA-Public Use
  Company Number: K200401169

PATIENT
  Age: 10 Year
  Sex: Female
  Weight: 40.1 kg

DRUGS (1)
  1. BICILLIN L-A [Suspect]
     Indication: PHARYNGITIS STREPTOCOCCAL
     Dosage: 1,200,000 U/2ML, SINGLE, INTRAMUSCULAR
     Route: 030
     Dates: start: 20040622, end: 20040622

REACTIONS (3)
  - INJECTION SITE ABSCESS [None]
  - INJECTION SITE CELLULITIS [None]
  - INJECTION SITE REACTION [None]
